FAERS Safety Report 4590154-9 (Version None)
Quarter: 2005Q1

REPORT INFORMATION
  Report Type: 
  Country: None (occurrence: None)
  Receive Date: 20050218
  Receipt Date: 20050218
  Transmission Date: 20050727
  Serious: Yes (Hospitalization)
  Sender: FDA-Public Use
  Company Number: None

PATIENT
  Age: 67 Year
  Sex: Male

DRUGS (3)
  1. THALIDOMIDE [Suspect]
     Indication: NON-SMALL CELL LUNG CANCER STAGE IV
     Dosage: 200 MG PO QD
     Route: 048
     Dates: start: 20041027
  2. CPT-11 (IRINOTECAN ) [Concomitant]
  3. GEMZAR [Concomitant]

REACTIONS (3)
  - DEHYDRATION [None]
  - DIARRHOEA [None]
  - VOMITING [None]
